FAERS Safety Report 17112528 (Version 2)
Quarter: 2019Q4

REPORT INFORMATION
  Report Type: Spontaneous
  Country: PT (occurrence: PT)
  Receive Date: 20191204
  Receipt Date: 20191206
  Transmission Date: 20200122
  Serious: Yes (Life-Threatening, Hospitalization, Other)
  Sender: FDA-Public Use
  Company Number: PT-MYLANLABS-2019M1118302

PATIENT
  Age: 59 Year
  Sex: Male

DRUGS (2)
  1. INDOMETHACIN                       /00003801/ [Suspect]
     Active Substance: INDOMETHACIN
     Indication: GOUTY ARTHRITIS
     Dosage: HIGH-DOSE
  2. IBUPROFEN. [Suspect]
     Active Substance: IBUPROFEN
     Indication: GOUTY ARTHRITIS
     Dosage: UNK, QD, HIGH-DOSE

REACTIONS (5)
  - Drug abuse [Unknown]
  - Cardiac arrest [Recovered/Resolved]
  - Hyperkalaemia [Unknown]
  - Intentional product misuse [Unknown]
  - Metabolic acidosis [Recovered/Resolved]
